FAERS Safety Report 15138027 (Version 4)
Quarter: 2018Q3

REPORT INFORMATION
  Report Type: Spontaneous
  Country: JP (occurrence: JP)
  Receive Date: 20180712
  Receipt Date: 20180827
  Transmission Date: 20181010
  Serious: Yes (Death, Other)
  Sender: FDA-Public Use
  Company Number: JP-SAKK-2018SA178937AA

PATIENT
  Age: 71 Year
  Sex: Male
  Weight: 58 kg

DRUGS (11)
  1. FAMOTIDINE. [Concomitant]
     Active Substance: FAMOTIDINE
     Indication: GASTRITIS
     Dosage: 20 MG, QD
     Route: 048
  2. MAGNESIUM OXIDE. [Concomitant]
     Active Substance: MAGNESIUM OXIDE
     Indication: CONSTIPATION
     Dosage: 330 MG, TID
     Route: 048
  3. JEVTANA [Suspect]
     Active Substance: CABAZITAXEL
     Dosage: UNK
     Route: 041
     Dates: start: 201805
  4. ATORVASTATIN [Concomitant]
     Active Substance: ATORVASTATIN
     Indication: HYPERCHOLESTEROLAEMIA
     Dosage: 10 MG, QD
     Route: 048
  5. JEVTANA [Suspect]
     Active Substance: CABAZITAXEL
     Indication: PROSTATE CANCER
     Dosage: 20 MG/M2, QD
     Route: 041
     Dates: start: 20180621
  6. PREDONINE [PREDNISOLONE ACETATE] [Concomitant]
     Indication: PROSTATE CANCER
     Dosage: 5 MG, BID
     Route: 048
  7. BETANIS [Concomitant]
     Active Substance: MIRABEGRON
     Indication: HYPERTONIC BLADDER
     Dosage: 50 MG, QD
     Route: 048
  8. AMLODIPINE [Concomitant]
     Active Substance: AMLODIPINE BESYLATE
     Indication: HYPERTENSION
     Dosage: 5 MG, QD
     Route: 048
  9. G LASTA [Concomitant]
     Active Substance: PEGFILGRASTIM
     Indication: PROPHYLAXIS
     Dosage: 3.6 MG, QD
     Route: 058
     Dates: start: 20180622
  10. OXYCODONE [Concomitant]
     Active Substance: OXYCODONE
     Indication: PAIN
     Dosage: 15 MG, BID
     Route: 065
  11. LOBU [Concomitant]
     Active Substance: LOBUCAVIR
     Indication: PAIN
     Dosage: 60 MG, TID
     Route: 065

REACTIONS (9)
  - Sepsis [Fatal]
  - Neutrophil count decreased [Fatal]
  - Disseminated intravascular coagulation [Fatal]
  - Blood pressure decreased [Fatal]
  - Pyrexia [Fatal]
  - Septic shock [Fatal]
  - Altered state of consciousness [Fatal]
  - Oxygen saturation decreased [Fatal]
  - Pneumonia [Fatal]

NARRATIVE: CASE EVENT DATE: 20180626
